FAERS Safety Report 13418148 (Version 1)
Quarter: 2017Q2

REPORT INFORMATION
  Report Type: Report from Study
  Country: BR (occurrence: BR)
  Receive Date: 20170407
  Receipt Date: 20170407
  Transmission Date: 20170830
  Serious: Yes (Hospitalization)
  Sender: FDA-Public Use
  Company Number: BR-BRISTOL-MYERS SQUIBB COMPANY-BMS-2017-005876

PATIENT
  Age: 74 Year
  Sex: Female

DRUGS (2)
  1. SINVASTATINA [Concomitant]
     Active Substance: SIMVASTATIN
     Indication: PRODUCT USED FOR UNKNOWN INDICATION
     Route: 065
  2. ABATACEPT [Suspect]
     Active Substance: ABATACEPT
     Indication: RHEUMATOID ARTHRITIS
     Dosage: 1 DF, QMO
     Route: 042

REACTIONS (12)
  - Peripheral swelling [Recovering/Resolving]
  - Platelet count decreased [Unknown]
  - Pyrexia [Unknown]
  - Chest pain [Unknown]
  - Abdominal pain upper [Recovering/Resolving]
  - Dyspnoea [Unknown]
  - Pain [Recovering/Resolving]
  - Gastrooesophageal reflux disease [Recovering/Resolving]
  - Movement disorder [Recovering/Resolving]
  - Spinal pain [Recovering/Resolving]
  - Vomiting [Unknown]
  - Memory impairment [Unknown]

NARRATIVE: CASE EVENT DATE: 201612
